FAERS Safety Report 12194280 (Version 1)
Quarter: 2016Q1

REPORT INFORMATION
  Report Type: Spontaneous
  Country: US (occurrence: US)
  Receive Date: 20160321
  Receipt Date: 20160321
  Transmission Date: 20160526
  Serious: No
  Sender: FDA-Public Use
  Company Number: US-ZYDUS-008225

PATIENT
  Age: 73 Year
  Sex: Male

DRUGS (1)
  1. ATENOLOL/ATENOLOL HYDROCHLORIDE [Suspect]
     Active Substance: ATENOLOL HYDROCHLORIDE
     Indication: ATRIAL FIBRILLATION
     Dosage: 12.5 MG ONCE A DAY
     Route: 048

REACTIONS (2)
  - Dyspnoea [Unknown]
  - Hypotension [Unknown]
